FAERS Safety Report 10886636 (Version 1)
Quarter: 2015Q1

REPORT INFORMATION
  Report Type: Spontaneous
  Country: US (occurrence: US)
  Receive Date: 20150304
  Receipt Date: 20150304
  Transmission Date: 20150721
  Serious: No
  Sender: FDA-Public Use
  Company Number: US-GLAXOSMITHKLINE-US2015GSK028091

PATIENT
  Sex: Female

DRUGS (1)
  1. VOTRIENT [Suspect]
     Active Substance: PAZOPANIB HYDROCHLORIDE
     Indication: LIP NEOPLASM MALIGNANT STAGE UNSPECIFIED
     Dosage: 800 MG, QD
     Route: 048
     Dates: start: 20141008

REACTIONS (2)
  - Insomnia [Unknown]
  - Nasopharyngitis [Unknown]
